FAERS Safety Report 16344969 (Version 5)
Quarter: 2019Q2

REPORT INFORMATION
  Report Type: Spontaneous
  Country: CA (occurrence: CA)
  Receive Date: 20190522
  Receipt Date: 20190621
  Transmission Date: 20190711
  Serious: Yes (Other)
  Sender: FDA-Public Use
  Company Number: CA-CELLTRION INC.-2018CA025079

PATIENT

DRUGS (16)
  1. INFLECTRA [Suspect]
     Active Substance: INFLIXIMAB-DYYB
     Dosage: 10 MG/KG EVERY 4 WEEKS
     Route: 042
     Dates: start: 20190510
  2. INFLECTRA [Suspect]
     Active Substance: INFLIXIMAB-DYYB
     Dosage: 700 MG EVERY 4 WEEKS
     Route: 042
     Dates: start: 20190608
  3. PREDNISONE. [Concomitant]
     Active Substance: PREDNISONE
     Dosage: UNK
     Dates: start: 201807
  4. PREDNISONE. [Concomitant]
     Active Substance: PREDNISONE
     Dosage: UNK
     Dates: start: 20181102
  5. MEZAVANT [Concomitant]
     Active Substance: MESALAMINE
     Dosage: UNK
  6. CALCIUM [Concomitant]
     Active Substance: CALCIUM
     Dosage: UNK, 2X/DAY
     Route: 048
  7. VITAMIN D [COLECALCIFEROL] [Concomitant]
     Active Substance: CHOLECALCIFEROL
     Dosage: 1000 IU, 2X/DAY
     Route: 048
  8. INFLECTRA [Suspect]
     Active Substance: INFLIXIMAB-DYYB
     Dosage: 10 MG/KG EVERY 4 WEEKS
     Route: 042
     Dates: start: 20190411
  9. INFLUENZA VACCINE [Concomitant]
     Active Substance: INFLUENZA VIRUS VACCINE
     Dosage: UNK
     Dates: start: 20190522, end: 20190522
  10. INFLECTRA [Suspect]
     Active Substance: INFLIXIMAB-DYYB
     Indication: CROHN^S DISEASE
     Dosage: 5 MG/KG EVERY 0, 2 ,6 WEEKS THEN EVERY 8 WEEKS
     Route: 042
     Dates: start: 20181206, end: 20190313
  11. MENINGOCOCCAL POLYSACCHARIDE VACCINE A NOS [Concomitant]
     Active Substance: MENINGOCOCCAL POLYSACCHARIDE VACCINE A\NEISSERIA MENINGITIDIS GROUP A CAPSULAR POLYSACCHARIDE ANTIGEN
     Dosage: UNK
     Dates: start: 20190522, end: 20190522
  12. PNEUMOCOCCAL VACCINE POLYVALENT NOS [Concomitant]
     Active Substance: PNEUMOCOCCAL VACCINE POLYVALENT
     Dosage: UNK
     Dates: start: 20190522, end: 20190522
  13. PREVNAR [Concomitant]
     Active Substance: PNEUMOCOCCAL 7-VALENT CONJUGATE VACCINE (DIPHTHERIA CRM197 PROTEIN)
     Dosage: UNK
     Dates: start: 20190522, end: 20190522
  14. INFLECTRA [Suspect]
     Active Substance: INFLIXIMAB-DYYB
     Dosage: 5 MG/KG EVERY 0, 2 ,6 WEEKS THEN EVERY 8 WEEKS
     Route: 042
     Dates: start: 20190116
  15. INFLECTRA [Suspect]
     Active Substance: INFLIXIMAB-DYYB
     Dosage: 5 MG/KG EVERY 0, 2 ,6 WEEKS THEN EVERY 8 WEEKS
     Route: 042
     Dates: start: 20181220
  16. INFLECTRA [Suspect]
     Active Substance: INFLIXIMAB-DYYB
     Dosage: 5 MG/KG EVERY 0, 2 ,6 WEEKS THEN EVERY 8 WEEKS
     Route: 042
     Dates: start: 20190313

REACTIONS (14)
  - Inappropriate schedule of product administration [Unknown]
  - Cytomegalovirus infection [Recovered/Resolved]
  - Condition aggravated [Not Recovered/Not Resolved]
  - Hypertension [Unknown]
  - Therapy non-responder [Unknown]
  - Headache [Unknown]
  - Pyrexia [Recovered/Resolved]
  - Fatigue [Unknown]
  - Blood pressure fluctuation [Unknown]
  - Stress [Unknown]
  - Dysgeusia [Not Recovered/Not Resolved]
  - Incorrect dosage administered [Unknown]
  - Off label use [Unknown]
  - Cytomegalovirus gastrointestinal infection [Not Recovered/Not Resolved]

NARRATIVE: CASE EVENT DATE: 201812
